FAERS Safety Report 8106315-8 (Version None)
Quarter: 2012Q1

REPORT INFORMATION
  Report Type: 
  Country: None (occurrence: None)
  Receive Date: 20120130
  Receipt Date: 20120118
  Transmission Date: 20120608
  Serious: Yes (Hospitalization)
  Sender: FDA-Public Use
  Company Number: 216518

PATIENT
  Age: 62 Year
  Sex: Male
  Weight: 108 kg

DRUGS (7)
  1. PRDNISONE (PREDNISONE) [Concomitant]
  2. RITUXIMAB (RITUXIMAB) [Concomitant]
  3. VINCRISTINE [Concomitant]
  4. DOXORUBICIN HCL [Concomitant]
  5. FILGRASTIM (FILGRASTIM) [Suspect]
     Indication: DIFFUSE LARGE B-CELL LYMPHOMA
     Dosage: (6 MG), SUBCUTANEOUS
     Route: 058
     Dates: start: 20111017
  6. INNOHEP [Suspect]
     Indication: THROMBOSIS PROPHYLAXIS
     Dosage: (18000 IU), SUBCUTANEOUS
     Route: 058
  7. CYCLOPHOSPHAMIDE [Concomitant]

REACTIONS (6)
  - AXILLARY VEIN THROMBOSIS [None]
  - INFECTION [None]
  - LUNG INFECTION [None]
  - SKIN ULCER [None]
  - SUBCLAVIAN VEIN THROMBOSIS [None]
  - MEDICAL DEVICE COMPLICATION [None]
